FAERS Safety Report 20133494 (Version 1)
Quarter: 2021Q4

REPORT INFORMATION
  Report Type: Other
  Country: CA (occurrence: CA)
  Receive Date: 20211201
  Receipt Date: 20211201
  Transmission Date: 20220303
  Serious: Yes (Life-Threatening)
  Sender: FDA-Public Use
  Company Number: CA-CELLTRION INC.-2021CA016116

PATIENT

DRUGS (8)
  1. RITUXIMAB [Suspect]
     Active Substance: RITUXIMAB
     Indication: Systemic sclerosis pulmonary
     Dosage: 1000 MG
     Route: 065
  2. CYCLOPHOSPHAMIDE [Suspect]
     Active Substance: CYCLOPHOSPHAMIDE
     Indication: Systemic sclerosis pulmonary
     Dosage: 125 MG, 1 EVERY 1 DAYS
     Route: 048
  3. CYCLOPHOSPHAMIDE [Suspect]
     Active Substance: CYCLOPHOSPHAMIDE
     Indication: Systemic sclerosis pulmonary
     Dosage: 75 MG, 1 EVERY 1 DAYS
     Route: 048
  4. MYCOPHENOLATE MOFETIL [Suspect]
     Active Substance: MYCOPHENOLATE MOFETIL
     Indication: Systemic sclerosis pulmonary
     Dosage: 1 G, 2 EVERY 1 DAYS
     Route: 065
  5. MYCOPHENOLATE MOFETIL [Suspect]
     Active Substance: MYCOPHENOLATE MOFETIL
     Indication: Systemic sclerosis pulmonary
     Dosage: 1.5 G, 2 EVERY 1 DAYS
     Route: 065
  6. PREDNISONE [Suspect]
     Active Substance: PREDNISONE
     Indication: Systemic sclerosis pulmonary
     Dosage: 12.5 MG, 1 EVERY DAYS
     Route: 065
  7. PREDNISONE [Suspect]
     Active Substance: PREDNISONE
     Dosage: 30 MG, 1 EVERY 1 DAYS
     Route: 065
  8. PREDNISONE [Suspect]
     Active Substance: PREDNISONE
     Indication: Systemic sclerosis pulmonary
     Dosage: 50 MG, 1 EVERY 1 DAYS
     Route: 065

REACTIONS (4)
  - Dyspnoea [Unknown]
  - Nausea [Unknown]
  - Pruritus [Unknown]
  - Off label use [Unknown]
